FAERS Safety Report 5291329-6 (Version None)
Quarter: 2007Q2

REPORT INFORMATION
  Report Type: 
  Country: None (occurrence: None)
  Receive Date: 20070403
  Receipt Date: 20070323
  Transmission Date: 20071010
  Serious: Yes (Death)
  Sender: FDA-Public Use
  Company Number: 2004EU001744

PATIENT
  Age: 89 Year
  Sex: Female

DRUGS (2)
  1. PROGRAF [Suspect]
     Indication: CORNEAL TRANSPLANT
     Dosage: 1.00 MG, BID, ORAL
     Route: 048
     Dates: start: 20030415
  2. DEXAMETHASONE TAB [Concomitant]

REACTIONS (3)
  - CARDIAC FAILURE CONGESTIVE [None]
  - LOWER RESPIRATORY TRACT INFECTION [None]
  - TRANSPLANT FAILURE [None]
